FAERS Safety Report 12257300 (Version 1)
Quarter: 2016Q2

REPORT INFORMATION
  Report Type: Spontaneous
  Country: US (occurrence: None)
  Receive Date: 20160411
  Receipt Date: 20160411
  Transmission Date: 20160815
  Serious: No
  Sender: FDA-Public Use
  Company Number: None

PATIENT
  Age: 48 Year
  Sex: Female
  Weight: 56.7 kg

DRUGS (1)
  1. RANITIDINE DR. RANDE LAZAR MD WALGREENS [Suspect]
     Active Substance: RANITIDINE HYDROCHLORIDE
     Indication: GASTRIC DISORDER
     Dosage: 30 PILLS 1 DAILY BEDTIME MOUTH
     Route: 048
     Dates: start: 20160315, end: 20160325

REACTIONS (2)
  - Throat irritation [None]
  - Chest pain [None]

NARRATIVE: CASE EVENT DATE: 20160315
